FAERS Safety Report 9400478 (Version 1)
Quarter: 2013Q3

REPORT INFORMATION
  Report Type: Spontaneous
  Country: FR (occurrence: FR)
  Receive Date: 20130715
  Receipt Date: 20130715
  Transmission Date: 20140515
  Serious: Yes (Other)
  Sender: FDA-Public Use
  Company Number: FR-JNJFOC-20121015538

PATIENT
  Sex: Female

DRUGS (1)
  1. ZALDIAR [Suspect]
     Indication: ABDOMINAL PAIN
     Route: 048
     Dates: start: 201209, end: 20120925

REACTIONS (2)
  - Abortion spontaneous [Recovered/Resolved]
  - Exposure during pregnancy [Recovered/Resolved]
